FAERS Safety Report 4439848-6 (Version None)
Quarter: 2004Q3

REPORT INFORMATION
  Report Type: 
  Country: None (occurrence: None)
  Receive Date: 20040902
  Receipt Date: 20040617
  Transmission Date: 20050211
  Serious: Yes (Death)
  Sender: FDA-Public Use
  Company Number: US-ROCHE-371538

PATIENT
  Age: 57 Year
  Sex: Male

DRUGS (8)
  1. FUZEON [Suspect]
     Indication: HIV INFECTION
     Route: 058
     Dates: start: 20040519, end: 20040615
  2. PROZAC [Concomitant]
  3. VIOXX [Concomitant]
  4. NEURONTIN [Concomitant]
  5. COMBIVIR [Concomitant]
  6. ZESTRIL [Concomitant]
  7. PRAVACHOL [Concomitant]
  8. NORVIR [Concomitant]

REACTIONS (1)
  - CORONARY ARTERY DISEASE [None]
